FAERS Safety Report 16400216 (Version 1)
Quarter: 2019Q2

REPORT INFORMATION
  Report Type: Spontaneous
  Country: US (occurrence: US)
  Receive Date: 20190606
  Receipt Date: 20190606
  Transmission Date: 20190711
  Serious: No
  Sender: FDA-Public Use
  Company Number: US-ALLERGAN-1846279US

PATIENT
  Sex: Male

DRUGS (3)
  1. KYBELLA [Suspect]
     Active Substance: DEOXYCHOLIC ACID
     Indication: FAT TISSUE INCREASED
     Dosage: 3 VIALS, SINGLE
     Route: 058
     Dates: start: 20180727, end: 20180727
  2. KYBELLA [Suspect]
     Active Substance: DEOXYCHOLIC ACID
     Dosage: 3.5 VIALS, SINGLE
     Route: 058
     Dates: start: 20180223, end: 20180223
  3. KYBELLA [Suspect]
     Active Substance: DEOXYCHOLIC ACID
     Dosage: 3.5 VIALS, SINGLE
     Route: 058
     Dates: start: 20180525, end: 20180525

REACTIONS (3)
  - Inflammation [Unknown]
  - Reflux laryngitis [Unknown]
  - Dysphagia [Not Recovered/Not Resolved]
